FAERS Safety Report 4795893-2 (Version None)
Quarter: 2005Q4

REPORT INFORMATION
  Report Type: 
  Country: None (occurrence: None)
  Receive Date: 20051012
  Receipt Date: 20050909
  Transmission Date: 20060501
  Serious: Yes (Hospitalization, Other)
  Sender: FDA-Public Use
  Company Number: US-MERCK-0509USA01457

PATIENT
  Age: 56 Year
  Sex: Female
  Weight: 77 kg

DRUGS (44)
  1. VIOXX [Suspect]
     Indication: ARTHRITIS
     Route: 048
     Dates: start: 20001001, end: 20040901
  2. VIOXX [Suspect]
     Indication: PAIN
     Route: 048
     Dates: start: 20001001, end: 20040901
  3. AZMACORT [Concomitant]
     Route: 065
  4. THEOPHYLLINE [Concomitant]
     Route: 065
  5. ACETAMINOPHEN AND HYDROCODONE BITARTRATE [Concomitant]
     Route: 065
  6. CYCLOBENZAPRINE HYDROCHLORIDE [Concomitant]
     Route: 065
  7. ALUPENT [Concomitant]
     Route: 065
  8. LIPITOR [Concomitant]
     Route: 065
  9. WELLBUTRIN SR [Concomitant]
     Route: 065
  10. ALPRAZOLAM [Concomitant]
     Route: 065
  11. ALBUTEROL [Concomitant]
     Route: 065
  12. ZITHROMAX [Concomitant]
     Route: 065
  13. NASACORT [Concomitant]
     Route: 065
  14. LEVAQUIN [Concomitant]
     Route: 065
  15. PREDNISONE [Concomitant]
     Route: 065
  16. RHINOCORT [Concomitant]
     Route: 065
  17. DOXYCYCLINE [Concomitant]
     Route: 065
  18. ALLEGRA [Concomitant]
     Route: 065
  19. CORTISPORIN CREAM [Concomitant]
     Route: 065
  20. MIRAPHEN PSE [Concomitant]
     Route: 065
  21. CARISOPRODOL [Concomitant]
     Route: 065
  22. AUGMENTIN '125' [Concomitant]
     Route: 065
  23. NORVASC [Concomitant]
     Route: 065
  24. DIAZEPAM [Concomitant]
     Route: 065
  25. GEMFIBROZIL [Concomitant]
     Route: 065
  26. ZOLOFT [Concomitant]
     Route: 065
  27. CEPHALEXIN [Concomitant]
     Route: 065
  28. CIPRO [Concomitant]
     Route: 065
  29. CHLORHEXIDINE HYDROCHLORIDE [Concomitant]
     Route: 065
  30. [THERAPY UNSPECIFIED] [Concomitant]
     Route: 065
  31. DURAGESIC-100 [Concomitant]
     Route: 065
  32. LOTREL [Concomitant]
     Route: 065
  33. HYDROCHLOROTHIAZIDE AND TRIAMTERENE [Concomitant]
     Route: 065
  34. PENICILLIN (UNSPECIFIED) [Concomitant]
     Route: 065
  35. MORPHINE SULFATE [Concomitant]
     Route: 065
  36. WARFARIN [Concomitant]
     Route: 065
  37. PHENYTOIN [Concomitant]
     Route: 065
  38. FERROUS SULFATE [Concomitant]
     Route: 065
  39. ASCORBIC ACID [Concomitant]
     Route: 065
  40. IPRATROPIUM BROMIDE [Concomitant]
     Route: 065
  41. PLAVIX [Concomitant]
     Route: 065
  42. DOCUSATE SODIUM [Concomitant]
     Route: 065
  43. SINGULAIR [Concomitant]
     Route: 065
  44. [THERAPY UNSPECIFIED] [Concomitant]
     Route: 065

REACTIONS (4)
  - CEREBROVASCULAR ACCIDENT [None]
  - CONVULSION [None]
  - HYPERTENSION [None]
  - PNEUMONIA [None]
